FAERS Safety Report 6300309-0 (Version None)
Quarter: 2009Q3

REPORT INFORMATION
  Report Type: 
  Country: None (occurrence: None)
  Receive Date: 20090806
  Receipt Date: 20090730
  Transmission Date: 20100115
  Serious: Yes (Hospitalization)
  Sender: FDA-Public Use
  Company Number: US-JNJCH-2009020785

PATIENT
  Sex: Female

DRUGS (1)
  1. VISINE-A [Suspect]
     Indication: EYE PAIN
     Dosage: TEXT:UNSPECIFIED
     Route: 047

REACTIONS (3)
  - EXPIRED DRUG ADMINISTERED [None]
  - EYE INFECTION BACTERIAL [None]
  - OFF LABEL USE [None]
